FAERS Safety Report 5313037-5 (Version None)
Quarter: 2007Q2

REPORT INFORMATION
  Report Type: 
  Country: None (occurrence: None)
  Receive Date: 20070430
  Receipt Date: 20070418
  Transmission Date: 20071010
  Serious: Yes (Other)
  Sender: FDA-Public Use
  Company Number: FR-PFIZER INC-2007023343

PATIENT
  Sex: Male
  Weight: 84 kg

DRUGS (11)
  1. LYRICA [Suspect]
     Indication: NEURALGIA
     Route: 048
     Dates: start: 20061002, end: 20061220
  2. LYRICA [Suspect]
     Indication: PAIN
  3. TAHOR [Interacting]
     Indication: DYSLIPIDAEMIA
     Route: 048
  4. BUFLOMEDIL [Interacting]
     Indication: ARTERIAL DISORDER
     Route: 048
  5. PLAVIX [Concomitant]
     Indication: ARTERIAL DISORDER
     Route: 048
  6. AVANDAMET [Concomitant]
     Indication: DIABETES MELLITUS NON-INSULIN-DEPENDENT
     Route: 048
  7. IRBESARTAN [Concomitant]
     Indication: HYPERTENSION
     Route: 048
  8. VASTAREL [Concomitant]
     Route: 048
  9. STILNOX [Concomitant]
     Indication: INSOMNIA
     Route: 048
  10. ATHYMIL [Concomitant]
     Indication: DEPRESSION
     Route: 048
  11. OMEPRAZOLE [Concomitant]

REACTIONS (3)
  - DRUG INTERACTION [None]
  - INCREASED APPETITE [None]
  - WEIGHT INCREASED [None]
